FAERS Safety Report 18629544 (Version 1)
Quarter: 2020Q4

REPORT INFORMATION
  Report Type: Spontaneous
  Country: GB (occurrence: GB)
  Receive Date: 20201217
  Receipt Date: 20201217
  Transmission Date: 20210114
  Serious: Yes (Other)
  Sender: FDA-Public Use
  Company Number: GB-MYLANLABS-2020M1101900

PATIENT
  Age: 49 Year
  Sex: Male

DRUGS (10)
  1. PREGABALIN. [Suspect]
     Active Substance: PREGABALIN
     Dosage: AS DIRECTED; STARTED AFTER ADR REPORTED, LAST PRESCRIBED 2/11/2020
     Route: 048
     Dates: start: 20201012
  2. SYMBICORT [Concomitant]
     Active Substance: BUDESONIDE\FORMOTEROL FUMARATE DIHYDRATE
     Indication: ASTHMA
     Dosage: 200/6; PUFF, LAST PRESCRIBED 02/11/2020, TURBOHALER
  3. PARACETAMOL [Concomitant]
     Active Substance: ACETAMINOPHEN
     Dosage: LAST PRESCRIBED 30/7/2020, NO INFORMATION IF PATIENT STILL TAKING
     Route: 048
     Dates: start: 20181212
  4. SALBUTAMOL [Concomitant]
     Active Substance: ALBUTEROL
     Indication: ASTHMA
     Dosage: AS REQUIRED 100MICROGRAMS/DOSE
     Dates: start: 20200615
  5. PREGABALIN. [Suspect]
     Active Substance: PREGABALIN
     Indication: NEURALGIA
     Dosage: DOSE INCREASING EVERY 3 DAYS AS TOLERATED
     Route: 048
     Dates: start: 20200918, end: 20201005
  6. PREGABALIN. [Suspect]
     Active Substance: PREGABALIN
     Dosage: LAST PRESCRIBED 2/11/2020
     Route: 048
     Dates: start: 20201006
  7. MONTELUKAST [Concomitant]
     Active Substance: MONTELUKAST SODIUM
     Indication: ASTHMA
     Dosage: EVENING
     Route: 048
     Dates: start: 20201005
  8. GABAPENTIN. [Concomitant]
     Active Substance: GABAPENTIN
     Indication: NEURALGIA
     Dosage: 100MG AT NIGHT FOR 1 DAY THEN 100MG TWICE DAILY FOR 1 DAY THEN 100MG THREE TIMES A DAY
     Route: 048
     Dates: start: 20200831, end: 20200916
  9. IBUPROFEN. [Concomitant]
     Active Substance: IBUPROFEN
     Dosage: LAST PRESCRIBED 30/7/2020, NO INFORMATION IF PATIENT STILL TAKING
     Route: 048
     Dates: start: 20181212
  10. KETOCONAZOLE. [Concomitant]
     Active Substance: KETOCONAZOLE
     Dosage: TO WASH HAIR
     Dates: start: 20201006

REACTIONS (1)
  - Tinnitus [Unknown]
